FAERS Safety Report 9653195 (Version 21)
Quarter: 2016Q4

REPORT INFORMATION
  Report Type: Spontaneous
  Country: US (occurrence: US)
  Receive Date: 20131029
  Receipt Date: 20161122
  Transmission Date: 20170207
  Serious: Yes (Hospitalization, Other)
  Sender: FDA-Public Use
  Company Number: US-GLAXOSMITHKLINE-A1047394A

PATIENT
  Age: 56 Year
  Sex: Female

DRUGS (18)
  1. FLOLAN [Suspect]
     Active Substance: EPOPROSTENOL SODIUM
     Dosage: 17NG/KG/MIN (CONCENTRATION 15,000 NG/ML, UNK PUMP RATE, VIAL STRENGTH 1.5 MG), CO
     Route: 042
     Dates: start: 20130107
  2. FLOLAN [Suspect]
     Active Substance: EPOPROSTENOL SODIUM
     Dosage: UNK
  3. FLOLAN [Suspect]
     Active Substance: EPOPROSTENOL SODIUM
     Indication: PULMONARY HYPERTENSION
  4. FLOLAN [Suspect]
     Active Substance: EPOPROSTENOL SODIUM
     Dosage: UNK
     Dates: start: 20101105
  5. FLOLAN [Suspect]
     Active Substance: EPOPROSTENOL SODIUM
     Dosage: 17 NG/KG/MIN, CONCENTRATION 15,000 NG/ML, PUMP RATE 82 ML/DAY, VIAL STRENGTH 1.5 MG, CO
     Route: 042
  6. FLOLAN [Suspect]
     Active Substance: EPOPROSTENOL SODIUM
     Dosage: 17NG/KG/MIN (CONCENTRATION 15,000 NG/ML, UNK PUMP RATE, VIAL STRENGTH 1.5 MG), CO
     Route: 042
  7. FLOLAN [Suspect]
     Active Substance: EPOPROSTENOL SODIUM
     Dosage: UNK, CO
     Dates: start: 20130107
  8. FLOLAN [Suspect]
     Active Substance: EPOPROSTENOL SODIUM
     Dosage: 17 NG/KG/MIN, CONTINUOUS
     Dates: start: 20130107
  9. FLOLAN [Suspect]
     Active Substance: EPOPROSTENOL SODIUM
     Dosage: 17 DF, CO
  10. FLOLAN [Suspect]
     Active Substance: EPOPROSTENOL SODIUM
     Dosage: UNK, CO
     Dates: start: 20130107
  11. FLOLAN [Suspect]
     Active Substance: EPOPROSTENOL SODIUM
     Indication: PULMONARY HYPERTENSION
     Dosage: UNK
  12. FLOLAN [Suspect]
     Active Substance: EPOPROSTENOL SODIUM
     Dosage: UNK
     Dates: start: 20101105
  13. FLOLAN [Suspect]
     Active Substance: EPOPROSTENOL SODIUM
     Dosage: 17 NG/KG/MIN, CO
     Route: 042
  14. REVATIO [Concomitant]
     Active Substance: SILDENAFIL CITRATE
  15. FLOLAN [Suspect]
     Active Substance: EPOPROSTENOL SODIUM
     Dosage: 20 DF, CO
  16. FLOLAN [Suspect]
     Active Substance: EPOPROSTENOL SODIUM
     Indication: COR PULMONALE CHRONIC
     Dosage: 15 NG/KG/MIN CONTINUOUSLY (CONCENTRATION 15,000 NG/ML; 1.5 MG VIAL STRENGTH)16 NG/KG/MIN CONTIN[...]
     Route: 042
     Dates: start: 20101101
  17. FLOLAN [Suspect]
     Active Substance: EPOPROSTENOL SODIUM
     Indication: PULMONARY HYPERTENSION
     Dosage: UNK
     Dates: start: 20101105
  18. FLOLAN [Suspect]
     Active Substance: EPOPROSTENOL SODIUM
     Dosage: UNK
     Dates: start: 20101105

REACTIONS (27)
  - Device related infection [Recovered/Resolved]
  - Hospitalisation [Unknown]
  - Anaemia [Unknown]
  - Device breakage [Not Recovered/Not Resolved]
  - Catheterisation cardiac [Unknown]
  - Thrombosis in device [Unknown]
  - Oxygen saturation decreased [Unknown]
  - Pneumonitis [Unknown]
  - Dyspnoea [Not Recovered/Not Resolved]
  - Platelet count decreased [Unknown]
  - Pulmonary arterial hypertension [Unknown]
  - Pyrexia [Unknown]
  - Diagnostic procedure [Unknown]
  - Pancytopenia [Unknown]
  - Neutropenia [Unknown]
  - Infusion site irritation [Recovered/Resolved]
  - Infusion site pain [Unknown]
  - Device infusion issue [Unknown]
  - Fibroma [Unknown]
  - Thrombocytopenia [Unknown]
  - Malaise [Unknown]
  - Pneumonia viral [Unknown]
  - Feeling abnormal [Unknown]
  - Central venous catheterisation [Unknown]
  - Wrong technique in product usage process [Unknown]
  - Pneumonia [Unknown]
  - Device leakage [Unknown]

NARRATIVE: CASE EVENT DATE: 20131003
